FAERS Safety Report 8407273 (Version 5)
Quarter: 2013Q4

REPORT INFORMATION
  Report Type: Spontaneous
  Country: US (occurrence: US)
  Receive Date: 20120215
  Receipt Date: 20131009
  Transmission Date: 20140711
  Serious: Yes (Other)
  Sender: FDA-Public Use
  Company Number: US-PFIZER INC-2012038080

PATIENT
  Sex: Female
  Weight: 4 kg

DRUGS (8)
  1. ZOLOFT [Suspect]
     Indication: ANXIETY
     Dosage: 50 MG, 1X/DAY
     Route: 064
     Dates: start: 20030902
  2. ZOLOFT [Suspect]
     Dosage: 25 MG, 1X/DAY
     Route: 064
     Dates: start: 20060709
  3. ARMOUR THYROID [Concomitant]
     Indication: HYPOTHYROIDISM
     Dosage: 30 UG, 1X/DAY
     Route: 064
  4. ARMOUR THYROID [Concomitant]
     Dosage: UNK
     Route: 064
     Dates: start: 20051213
  5. ARMOUR THYROID [Concomitant]
     Dosage: 15 MG, 1X/DAY
     Route: 064
     Dates: start: 20060222
  6. TYLENOL 4 [Concomitant]
     Indication: BACK PAIN
     Dosage: DAILY
     Route: 064
     Dates: start: 20051213
  7. TYLENOL 4 [Concomitant]
     Dosage: EVERY 8 HOURS
     Route: 064
     Dates: start: 20060412
  8. PRENATAL VITAMINS [Concomitant]
     Dosage: UNK
     Route: 064
     Dates: start: 20060709

REACTIONS (2)
  - Maternal exposure timing unspecified [Unknown]
  - Foetal cardiac disorder [Unknown]
